FAERS Safety Report 22820051 (Version 3)
Quarter: 2023Q4

REPORT INFORMATION
  Report Type: Spontaneous
  Country: US (occurrence: US)
  Receive Date: 20230814
  Receipt Date: 20231011
  Transmission Date: 20240110
  Serious: No
  Sender: FDA-Public Use
  Company Number: US-PFIZER INC-PV202300132527

PATIENT
  Age: 64 Year
  Sex: Female
  Weight: 77.098 kg

DRUGS (2)
  1. ESTRING [Suspect]
     Active Substance: ESTRADIOL
     Indication: Hormone therapy
     Dosage: UNK
  2. ESTRING [Suspect]
     Active Substance: ESTRADIOL
     Dosage: 1 RING FOR 90 DAYS
     Route: 067

REACTIONS (1)
  - Device difficult to use [Unknown]
